FAERS Safety Report 11521306 (Version 1)
Quarter: 2015Q3

REPORT INFORMATION
  Report Type: Spontaneous
  Country: US (occurrence: US)
  Receive Date: 20150918
  Receipt Date: 20150918
  Transmission Date: 20151125
  Serious: Yes (Other)
  Sender: FDA-Public Use
  Company Number: US-ROCHE-661681

PATIENT
  Sex: Female

DRUGS (2)
  1. RIBAVIRIN. [Suspect]
     Active Substance: RIBAVIRIN
     Indication: HEPATITIS C
     Dosage: DIVIDED DOSES, THE PATIENT WAS IN WEEK 43 OF TREATMENT.
     Route: 065
  2. PEGASYS [Suspect]
     Active Substance: PEGINTERFERON ALFA-2A
     Indication: HEPATITIS C
     Dosage: FORM: PREFILLED SYRINGE, THE PATIENT WAS IN WEEK 43 OF TREATMENT.
     Route: 065

REACTIONS (16)
  - Restless legs syndrome [Not Recovered/Not Resolved]
  - Haematochezia [Unknown]
  - Weight increased [Not Recovered/Not Resolved]
  - Gastroenteritis viral [Recovering/Resolving]
  - Irritability [Recovering/Resolving]
  - Fatigue [Recovering/Resolving]
  - Memory impairment [Unknown]
  - Nocturnal dyspnoea [Recovering/Resolving]
  - Tremor [Unknown]
  - Full blood count decreased [Unknown]
  - Drug dose omission [Unknown]
  - Tinnitus [Unknown]
  - Injection site bruising [Recovering/Resolving]
  - Sensation of foreign body [Not Recovered/Not Resolved]
  - Dry mouth [Unknown]
  - Anal haemorrhage [Not Recovered/Not Resolved]
